FAERS Safety Report 7291082-0 (Version None)
Quarter: 2011Q1

REPORT INFORMATION
  Report Type: 
  Country: None (occurrence: None)
  Receive Date: 20110214
  Receipt Date: 20110202
  Transmission Date: 20110831
  Serious: Yes (Other)
  Sender: FDA-Public Use
  Company Number: FR-TEVA-266564ISR

PATIENT
  Age: 72 Year
  Sex: Male

DRUGS (2)
  1. FLUINDIONE [Interacting]
     Dosage: 0.75 OR 1 DOSAGE FORM
     Dates: start: 20110107
  2. BACTRIM [Suspect]
     Indication: OROPHARYNGEAL PAIN
     Dosage: 800MG/160MG
     Route: 048
     Dates: start: 20110128, end: 20110201

REACTIONS (2)
  - INTERNATIONAL NORMALISED RATIO ABNORMAL [None]
  - DRUG INTERACTION [None]
